FAERS Safety Report 12770776 (Version 1)
Quarter: 2016Q3

REPORT INFORMATION
  Report Type: Spontaneous
  Country: US (occurrence: US)
  Receive Date: 20160919
  Receipt Date: 20160919
  Transmission Date: 20161109
  Serious: Yes (Other)
  Sender: FDA-Public Use
  Company Number: None

PATIENT
  Age: 41 Year
  Sex: Female

DRUGS (1)
  1. NORGESTIMATE/ETHINYL ESTRADIOL [Suspect]
     Active Substance: ETHINYL ESTRADIOL\NORGESTIMATE
     Indication: PREMATURE MENOPAUSE
     Route: 048
     Dates: start: 20140614, end: 20160526

REACTIONS (4)
  - Inability to afford medication [None]
  - Mood altered [None]
  - Product substitution issue [None]
  - Metrorrhagia [None]

NARRATIVE: CASE EVENT DATE: 20150526
